FAERS Safety Report 10888632 (Version 2)
Quarter: 2015Q2

REPORT INFORMATION
  Report Type: Spontaneous
  Country: US (occurrence: US)
  Receive Date: 20150305
  Receipt Date: 20150529
  Transmission Date: 20150821
  Serious: No
  Sender: FDA-Public Use
  Company Number: US-SA-2015SA012774

PATIENT
  Age: 43 Year
  Sex: Female

DRUGS (4)
  1. CERDELGA [Suspect]
     Active Substance: ELIGLUSTAT
     Indication: GAUCHER^S DISEASE
     Route: 048
     Dates: start: 20141224, end: 2015
  2. ZAVESCA [Concomitant]
     Active Substance: MIGLUSTAT
     Indication: GAUCHER^S DISEASE
     Dates: end: 201412
  3. IMITREX [Concomitant]
     Active Substance: SUMATRIPTAN\SUMATRIPTAN SUCCINATE
     Indication: MIGRAINE
  4. CERDELGA [Suspect]
     Active Substance: ELIGLUSTAT
     Indication: GAUCHER^S DISEASE
     Route: 048
     Dates: start: 2015

REACTIONS (6)
  - Rash [Not Recovered/Not Resolved]
  - Dysgeusia [Not Recovered/Not Resolved]
  - Appetite disorder [Not Recovered/Not Resolved]
  - Nausea [Not Recovered/Not Resolved]
  - Dry skin [Not Recovered/Not Resolved]
  - Thirst [Not Recovered/Not Resolved]

NARRATIVE: CASE EVENT DATE: 201501
